FAERS Safety Report 4292043-6 (Version None)
Quarter: 2004Q1

REPORT INFORMATION
  Report Type: 
  Country: None (occurrence: None)
  Receive Date: 20040210
  Receipt Date: 20040210
  Transmission Date: 20041129
  Serious: Yes (Death)
  Sender: FDA-Public Use
  Company Number: None

PATIENT
  Age: 49 Year
  Sex: Male
  Weight: 80 kg

DRUGS (1)
  1. POLYGAM S/D [Suspect]
     Indication: ANAEMIA HAEMOLYTIC AUTOIMMUNE
     Dosage: 80 GRAMS
     Dates: start: 20040128

REACTIONS (3)
  - CARDIO-RESPIRATORY ARREST [None]
  - CHEST PAIN [None]
  - DYSPNOEA [None]
